FAERS Safety Report 23823431 (Version 5)
Quarter: 2024Q2

REPORT INFORMATION
  Report Type: Spontaneous
  Country: HU (occurrence: HU)
  Receive Date: 20240507
  Receipt Date: 20240606
  Transmission Date: 20240715
  Serious: Yes (Death, Life-Threatening, Hospitalization, Other)
  Sender: FDA-Public Use
  Company Number: HU-CELLTRION INC.-2024HU010084

PATIENT

DRUGS (18)
  1. RITUXIMAB [Suspect]
     Active Substance: RITUXIMAB
     Indication: Product used for unknown indication
     Dosage: UNK
     Dates: start: 20210211, end: 20210630
  2. RITUXIMAB [Suspect]
     Active Substance: RITUXIMAB
     Dosage: UNK
     Dates: start: 20210902, end: 20210924
  3. RITUXIMAB [Suspect]
     Active Substance: RITUXIMAB
     Dosage: 375 MG/M2, 1Q2W
     Route: 042
     Dates: start: 20211208, end: 20211208
  4. OXALIPLATIN [Suspect]
     Active Substance: OXALIPLATIN
     Indication: Product used for unknown indication
     Dosage: 100 MG/M2, 1Q2W (ADDITIONAL INFORMATION ON DRUG (FREE TEXT): REGIMEN: 1)
     Route: 042
     Dates: start: 20211208, end: 20211208
  5. GEMCITABINE HYDROCHLORIDE [Suspect]
     Active Substance: GEMCITABINE HYDROCHLORIDE
     Indication: Product used for unknown indication
     Dosage: 1000 MG/M2, 1Q2W (ADDITIONAL INFORMATION ON DRUG (FREE TEXT): REGIMEN: 1)
     Route: 042
     Dates: start: 20211208, end: 20211208
  6. ATORVASTATIN [Concomitant]
     Active Substance: ATORVASTATIN
     Dosage: UNK
     Dates: start: 202105
  7. ASPIRIN [Concomitant]
     Active Substance: ASPIRIN
     Dosage: UNK
     Dates: start: 202105, end: 20211213
  8. ACYCLOVIR [Concomitant]
     Active Substance: ACYCLOVIR
     Dosage: UNK
     Dates: start: 20211213
  9. RASBURICASE [Concomitant]
     Active Substance: RASBURICASE
     Dosage: UNK
     Dates: start: 20211208, end: 20211208
  10. SULFAMETHOXAZOLE\TRIMETHOPRIM [Concomitant]
     Active Substance: SULFAMETHOXAZOLE\TRIMETHOPRIM
     Dosage: UNK
     Dates: start: 20211213
  11. NALOXONE HYDROCHLORIDE [Concomitant]
     Active Substance: NALOXONE HYDROCHLORIDE
     Dosage: ADDITIONAL INFORMATION ON DRUG (FREE TEXT): OXYNADOR
     Dates: start: 202110
  12. APO FAMOTIDINE [Concomitant]
     Dosage: UNK
     Dates: start: 202102
  13. PANTOPRAZOLE [Concomitant]
     Active Substance: PANTOPRAZOLE
     Dosage: UNK
     Dates: start: 20211208
  14. VITAMIN D3 [Concomitant]
     Active Substance: CHOLECALCIFEROL
     Dosage: UNK
     Dates: start: 202109
  15. FILGRASTIM [Concomitant]
     Active Substance: FILGRASTIM
     Dosage: ADDITIONAL INFORMATION ON DRUG (FREE TEXT): ACCOFIL
     Dates: start: 20211213
  16. OXYCODONE HYDROCHLORIDE [Concomitant]
     Active Substance: OXYCODONE HYDROCHLORIDE
     Dosage: ADDITIONAL INFORMATION ON DRUG (FREE TEXT): OXYNADOR
     Dates: start: 202110
  17. DEXAMETHASONE [Concomitant]
     Active Substance: DEXAMETHASONE
     Dosage: UNK
     Dates: start: 20211220, end: 20211227
  18. CONTROLOC [Concomitant]
     Active Substance: PANTOPRAZOLE SODIUM
     Dosage: ADDITIONAL INFORMATION ON DRUG (FREE TEXT): PANTOPRAZOLE SODIUM SESQUIHYDRATE
     Dates: start: 20211220, end: 20211223

REACTIONS (5)
  - Disease progression [Fatal]
  - Hypercalcaemia [Recovered/Resolved]
  - Blood uric acid increased [Recovered/Resolved]
  - Vomiting [Recovered/Resolved]
  - Off label use [Unknown]

NARRATIVE: CASE EVENT DATE: 20211208
